FAERS Safety Report 5363530-4 (Version None)
Quarter: 2007Q2

REPORT INFORMATION
  Report Type: 
  Country: None (occurrence: None)
  Receive Date: 20070618
  Receipt Date: 20070606
  Transmission Date: 20071010
  Serious: Yes (Other)
  Sender: FDA-Public Use
  Company Number: 6034367

PATIENT
  Age: 80 Year
  Sex: Male

DRUGS (2)
  1. CONCOR COR 2, 5 MG (BISOPROLOL FUMARATE) [Suspect]
     Indication: DRUG USE FOR UNKNOWN INDICATION
     Dosage: 1 DOSAGE, FORMS (1 DOSAGE FORMS, 1 IN 1 D), ORAL
     Route: 048
  2. NOLICIN (NORFLOXACIN) [Suspect]
     Indication: PROSTATITIS
     Dosage: 800 MG (400 MG, 2 IN 1 D), ORAL
     Route: 048

REACTIONS (5)
  - BLOOD PRESSURE DIASTOLIC DECREASED [None]
  - DIZZINESS [None]
  - GAIT DISTURBANCE [None]
  - HYPOTENSION [None]
  - SYNCOPE [None]
